FAERS Safety Report 7984914-1 (Version None)
Quarter: 2011Q4

REPORT INFORMATION
  Report Type: 
  Country: None (occurrence: None)
  Receive Date: 20111216
  Receipt Date: 20111007
  Transmission Date: 20120403
  Serious: No
  Sender: FDA-Public Use
  Company Number: US-ALLERGAN-1113289US

PATIENT
  Age: 69 Year
  Sex: Female

DRUGS (1)
  1. LATISSE [Suspect]
     Indication: HAIR GROWTH ABNORMAL
     Dosage: 1 GTT, QHS
     Route: 061
     Dates: start: 20111001, end: 20111005

REACTIONS (2)
  - ABNORMAL SENSATION IN EYE [None]
  - SKIN HYPERPIGMENTATION [None]
